FAERS Safety Report 4335045-3 (Version None)
Quarter: 2004Q2

REPORT INFORMATION
  Report Type: 
  Country: None (occurrence: None)
  Receive Date: 20040408
  Receipt Date: 20040317
  Transmission Date: 20050107
  Serious: Yes (Other)
  Sender: FDA-Public Use
  Company Number: ES-GLAXOSMITHKLINE-B0327202A

PATIENT
  Age: 37 Year
  Sex: Male

DRUGS (1)
  1. AUGMENTIN [Suspect]
     Indication: NASOPHARYNGITIS
     Route: 048

REACTIONS (1)
  - LARYNGEAL OEDEMA [None]
